FAERS Safety Report 10180950 (Version 1)
Quarter: 2014Q2

REPORT INFORMATION
  Report Type: Spontaneous
  Country: US (occurrence: US)
  Receive Date: 20140519
  Receipt Date: 20140519
  Transmission Date: 20141212
  Serious: No
  Sender: FDA-Public Use
  Company Number: US-AMGEN INC.-USASP2014005869

PATIENT
  Age: 83 Year
  Sex: Female

DRUGS (5)
  1. PROLIA [Suspect]
     Indication: OSTEOPOROSIS POSTMENOPAUSAL
     Dosage: UNK
     Route: 065
     Dates: start: 201212
  2. XELJANZ [Concomitant]
  3. CRANBERRY                          /01512301/ [Concomitant]
  4. CALCIUM [Concomitant]
  5. VITAMIN D                          /00107901/ [Concomitant]

REACTIONS (5)
  - Pollakiuria [Not Recovered/Not Resolved]
  - Tendonitis [Unknown]
  - Bone disorder [Unknown]
  - Drug ineffective [Unknown]
  - Myalgia [Unknown]
